FAERS Safety Report 9258070 (Version 1)
Quarter: 2013Q2

REPORT INFORMATION
  Report Type: Report from Study
  Country: CA (occurrence: CA)
  Receive Date: 20130426
  Receipt Date: 20130426
  Transmission Date: 20140414
  Serious: Yes (Other)
  Sender: FDA-Public Use
  Company Number: CA-JNJFOC-20130412321

PATIENT
  Sex: Male
  Weight: 138 kg

DRUGS (1)
  1. REMICADE [Suspect]
     Indication: PRODUCT USED FOR UNKNOWN INDICATION
     Dosage: FOR 52 WEEKS
     Route: 042
     Dates: start: 20110510, end: 20130326

REACTIONS (2)
  - Calculus bladder [Not Recovered/Not Resolved]
  - Fungal infection [Unknown]
